FAERS Safety Report 5817038-X (Version None)
Quarter: 2008Q3

REPORT INFORMATION
  Report Type: 
  Country: None (occurrence: None)
  Receive Date: 20080722
  Receipt Date: 20080711
  Transmission Date: 20090109
  Serious: Yes (Life-Threatening, Other)
  Sender: FDA-Public Use
  Company Number: HQWYE981410SEP04

PATIENT
  Sex: Female
  Weight: 99.88 kg

DRUGS (4)
  1. PREMPRO [Suspect]
     Indication: HORMONE REPLACEMENT THERAPY
  2. PROVERA [Suspect]
  3. MEDROXYPROGESTERONE [Suspect]
  4. PREMARIN [Suspect]

REACTIONS (2)
  - BREAST CANCER METASTATIC [None]
  - LUNG NEOPLASM MALIGNANT [None]
